FAERS Safety Report 12615713 (Version 2)
Quarter: 2017Q3

REPORT INFORMATION
  Report Type: Spontaneous
  Country: US (occurrence: US)
  Receive Date: 20160802
  Receipt Date: 20170724
  Transmission Date: 20171127
  Serious: No
  Sender: FDA-Public Use
  Company Number: US-IMPAX LABORATORIES, INC-2016-IPXL-00712

PATIENT
  Age: 62 Year
  Sex: Female
  Weight: 87.5 kg

DRUGS (2)
  1. ENTACAPONE. [Concomitant]
     Active Substance: ENTACAPONE
     Indication: PARKINSON^S DISEASE
     Dosage: UNK
     Route: 065
  2. RYTARY [Suspect]
     Active Substance: CARBIDOPA\LEVODOPA
     Indication: PARKINSON^S DISEASE
     Dosage: 48.75/195MG, 4 CAPSULES FIVE TIMES DAILY AND 4 CAPSULES AS NEEDED AT BEDTIME
     Route: 048
     Dates: start: 201510

REACTIONS (4)
  - Weight decreased [Unknown]
  - Prescribed overdose [Unknown]
  - Feeling drunk [Not Recovered/Not Resolved]
  - Yawning [Not Recovered/Not Resolved]

NARRATIVE: CASE EVENT DATE: 201601
